FAERS Safety Report 8320052-6 (Version None)
Quarter: 2012Q2

REPORT INFORMATION
  Report Type: 
  Country: None (occurrence: None)
  Receive Date: 20120427
  Receipt Date: 20120423
  Transmission Date: 20120825
  Serious: Yes (Other)
  Sender: FDA-Public Use
  Company Number: US-AMGEN-USASP2012025572

PATIENT
  Age: 68 Year
  Sex: Female
  Weight: 60.771 kg

DRUGS (18)
  1. LEVOXYL [Concomitant]
  2. CALCIUM CARBONATE [Concomitant]
  3. PACLITAXEL [Concomitant]
  4. LOSARTAN POTASSIUM [Concomitant]
     Dosage: UNK
     Dates: start: 20120316
  5. AMBIEN [Concomitant]
  6. PEGFILGRASTIM [Suspect]
     Indication: PRODUCT USED FOR UNKNOWN INDICATION
     Dosage: UNK
     Dates: start: 20120302
  7. OMEPRAZOLE [Concomitant]
  8. TRIAMCINOLONE ACETONIDE [Concomitant]
  9. TRASTUZUMAB [Suspect]
     Indication: BREAST CANCER
     Dosage: UNK
     Route: 042
     Dates: start: 20120302
  10. DOCETAXEL [Suspect]
     Indication: PRODUCT USED FOR UNKNOWN INDICATION
     Dosage: UNK
     Dates: start: 20120302
  11. FISH OIL [Concomitant]
  12. LIDOCAINE [Concomitant]
  13. HYDROCODONE/ACETAMINOPHEN          /00607101/ [Concomitant]
  14. CARBOPLATIN [Concomitant]
  15. PRILOCAINE HYDROCHLORIDE [Concomitant]
  16. SENNA                              /00142201/ [Concomitant]
  17. ASPIRIN [Concomitant]
  18. CRESTOR [Concomitant]

REACTIONS (8)
  - WEIGHT DECREASED [None]
  - DECREASED APPETITE [None]
  - PALMAR-PLANTAR ERYTHRODYSAESTHESIA SYNDROME [None]
  - WEIGHT INCREASED [None]
  - BLOOD PRESSURE DECREASED [None]
  - ARTHRALGIA [None]
  - DERMATITIS [None]
  - DYSGEUSIA [None]
